FAERS Safety Report 8175281-1 (Version None)
Quarter: 2012Q1

REPORT INFORMATION
  Report Type: 
  Country: None (occurrence: None)
  Receive Date: 20120229
  Receipt Date: 20120220
  Transmission Date: 20120608
  Serious: Yes (Hospitalization)
  Sender: FDA-Public Use
  Company Number: US-ELI_LILLY_AND_COMPANY-US201005005613

PATIENT
  Sex: Female

DRUGS (4)
  1. FORTEO [Suspect]
     Indication: OSTEOPOROSIS
     Dosage: 20 UG, QD
     Route: 065
     Dates: start: 20100326
  2. ANTIBIOTICS [Concomitant]
  3. FORTEO [Suspect]
     Dosage: 20 UG, QD
     Route: 065
     Dates: end: 20110630
  4. FORTEO [Suspect]
     Dosage: 20 UG, QD
     Route: 065

REACTIONS (7)
  - FLATULENCE [None]
  - GASTROINTESTINAL DISORDER [None]
  - FEELING ABNORMAL [None]
  - ABDOMINAL PAIN UPPER [None]
  - DIVERTICULITIS [None]
  - DIZZINESS [None]
  - CONTUSION [None]
